FAERS Safety Report 5822537-0 (Version None)
Quarter: 2008Q3

REPORT INFORMATION
  Report Type: 
  Country: None (occurrence: None)
  Receive Date: 20080725
  Receipt Date: 20080123
  Transmission Date: 20090109
  Serious: No
  Sender: FDA-Public Use
  Company Number: US-AMGEN-KDL236392

PATIENT
  Sex: Male
  Weight: 67.9 kg

DRUGS (2)
  1. PROCRIT [Suspect]
     Indication: ANAEMIA
     Dates: start: 20061101
  2. MEGACE [Concomitant]

REACTIONS (1)
  - HALLUCINATION [None]
